FAERS Safety Report 4608272-5 (Version None)
Quarter: 2005Q2

REPORT INFORMATION
  Report Type: 
  Country: None (occurrence: None)
  Receive Date: 20050303
  Receipt Date: 20041201
  Transmission Date: 20051028
  Serious: No
  Sender: FDA-Public Use
  Company Number: 2004BI000954

PATIENT
  Age: 77 Year
  Sex: Male

DRUGS (1)
  1. AMEVIVE [Suspect]
     Indication: PSORIASIS
     Dosage: 15 MG; QW; IM
     Route: 030
     Dates: start: 20041109, end: 20041109

REACTIONS (4)
  - CHILLS [None]
  - DYSPHAGIA [None]
  - PSORIASIS [None]
  - TREMOR [None]
